FAERS Safety Report 9553784 (Version 2)
Quarter: 2014Q1

REPORT INFORMATION
  Report Type: Spontaneous
  Country: CA (occurrence: None)
  Receive Date: 20130923
  Receipt Date: 20140212
  Transmission Date: 20141002
  Serious: Yes (Other)
  Sender: FDA-Public Use
  Company Number: A1041960A

PATIENT
  Age: 32 Year
  Sex: Female

DRUGS (1)
  1. CALCIUM SODIUM PHOSPHOSILICATE + SODIUM MONOFLUOROPHOSPHATE ) [Suspect]
     Indication: DENTAL CARE
     Route: 004
     Dates: start: 20130913

REACTIONS (3)
  - Choking [None]
  - Product contamination physical [None]
  - Product quality issue [None]
